FAERS Safety Report 10498818 (Version 5)
Quarter: 2018Q2

REPORT INFORMATION
  Report Type: Spontaneous
  Country: JP (occurrence: JP)
  Receive Date: 20141006
  Receipt Date: 20180613
  Transmission Date: 20180711
  Serious: Yes (Life-Threatening, Hospitalization)
  Sender: FDA-Public Use
  Company Number: PHHY2014JP126768

PATIENT
  Age: 65 Year
  Sex: Male
  Weight: 61 kg

DRUGS (3)
  1. TASIGNA [Suspect]
     Active Substance: NILOTINIB
     Dosage: 400 MG, BID
     Route: 048
     Dates: start: 20110714, end: 20140924
  2. SPRYCEL [Concomitant]
     Active Substance: DASATINIB
     Indication: CHRONIC MYELOID LEUKAEMIA
     Dosage: 100 MG, QD
     Route: 065
     Dates: start: 20110711, end: 20110711
  3. TASIGNA [Suspect]
     Active Substance: NILOTINIB
     Indication: CHRONIC MYELOID LEUKAEMIA
     Dosage: 400 MG, BID
     Route: 048
     Dates: start: 20101207, end: 20110710

REACTIONS (12)
  - Chest pain [Unknown]
  - Cerebral infarction [Recovered/Resolved with Sequelae]
  - Cerebral infarction [Recovered/Resolved with Sequelae]
  - Cerebral infarction [Recovering/Resolving]
  - Hypoaesthesia [Unknown]
  - Acute coronary syndrome [Recovering/Resolving]
  - Myocardial infarction [Unknown]
  - Salivary hypersecretion [Unknown]
  - White blood cell count increased [Unknown]
  - Dysarthria [Unknown]
  - Carotid artery stenosis [Unknown]
  - Paresis [Recovering/Resolving]

NARRATIVE: CASE EVENT DATE: 20130908
